FAERS Safety Report 25543938 (Version 1)
Quarter: 2025Q3

REPORT INFORMATION
  Report Type: Spontaneous
  Country: US (occurrence: None)
  Receive Date: 20250710
  Receipt Date: 20250710
  Transmission Date: 20251020
  Serious: Yes (Disabling)
  Sender: FDA-CTU
  Company Number: None

PATIENT
  Age: 62 Year
  Sex: Male
  Weight: 75.15 kg

DRUGS (2)
  1. KEYTRUDA [Suspect]
     Active Substance: PEMBROLIZUMAB
     Indication: Renal cell carcinoma
     Route: 042
     Dates: start: 20240817
  2. INLYTA [Suspect]
     Active Substance: AXITINIB
     Dates: start: 20240817

REACTIONS (13)
  - Blood sodium decreased [None]
  - Lymphadenopathy [None]
  - Peripheral swelling [None]
  - Joint swelling [None]
  - Pain [None]
  - Blister [None]
  - Weight decreased [None]
  - Nausea [None]
  - Diarrhoea [None]
  - Depression [None]
  - Increased appetite [None]
  - Fall [None]
  - Insomnia [None]

NARRATIVE: CASE EVENT DATE: 20250312
